FAERS Safety Report 5195320-X (Version None)
Quarter: 2006Q4

REPORT INFORMATION
  Report Type: 
  Country: None (occurrence: None)
  Receive Date: 20061229
  Receipt Date: 20061219
  Transmission Date: 20070319
  Serious: Yes (Hospitalization)
  Sender: FDA-Public Use
  Company Number: RU-PFIZER INC-2006154775

PATIENT
  Sex: Female
  Weight: 80 kg

DRUGS (13)
  1. DOXORUBICIN HYDROCHLORIDE [Suspect]
     Indication: CHEMOTHERAPY
     Dosage: DAILY DOSE:126MG
     Route: 042
     Dates: start: 20060518, end: 20060518
  2. DOXORUBICIN HYDROCHLORIDE [Suspect]
     Dosage: DAILY DOSE:122MG
     Route: 042
     Dates: start: 20060608, end: 20060608
  3. DOXORUBICIN HYDROCHLORIDE [Suspect]
     Dosage: DAILY DOSE:122MG
     Route: 042
     Dates: start: 20060629, end: 20060629
  4. DOXORUBICIN HYDROCHLORIDE [Suspect]
     Dosage: DAILY DOSE:117MG
     Route: 042
     Dates: start: 20060720, end: 20060720
  5. DOCETAXEL [Suspect]
     Indication: CHEMOTHERAPY
     Dosage: DAILY DOSE:158MG
     Route: 042
     Dates: start: 20060518, end: 20060518
  6. DOCETAXEL [Suspect]
     Dosage: DAILY DOSE:153MG
     Route: 042
     Dates: start: 20060608, end: 20060608
  7. DOCETAXEL [Suspect]
     Dosage: DAILY DOSE:153MG
     Route: 042
     Dates: start: 20060629, end: 20060629
  8. DOCETAXEL [Suspect]
     Dosage: DAILY DOSE:146MG
     Route: 042
     Dates: start: 20060720, end: 20060720
  9. INVESTIGATIONAL DRUG [Suspect]
     Indication: PROPHYLAXIS
     Dosage: TEXT:48 MIU
     Dates: start: 20060519, end: 20060529
  10. DEXAMETHASONE [Suspect]
     Indication: PREMEDICATION
     Dosage: DAILY DOSE:8MG
     Route: 042
     Dates: start: 20060517, end: 20060519
  11. DEXAMETHASONE [Suspect]
     Dosage: DAILY DOSE:8MG
     Route: 042
     Dates: start: 20060607, end: 20060609
  12. DEXAMETHASONE [Suspect]
     Dosage: DAILY DOSE:8MG
     Route: 042
     Dates: start: 20060628, end: 20060630
  13. DEXAMETHASONE [Suspect]
     Dosage: DAILY DOSE:8MG
     Route: 042
     Dates: start: 20060719, end: 20060721

REACTIONS (3)
  - ANAEMIA [None]
  - HEPATITIS TOXIC [None]
  - HYPERBILIRUBINAEMIA [None]
